FAERS Safety Report 9629760 (Version 1)
Quarter: 2013Q4

REPORT INFORMATION
  Report Type: Spontaneous
  Country: US (occurrence: US)
  Receive Date: 20131017
  Receipt Date: 20131017
  Transmission Date: 20140711
  Serious: Yes (Life-Threatening, Hospitalization)
  Sender: FDA-Public Use
  Company Number: US-ASTRAZENECA-2013SE76160

PATIENT
  Age: 62 Year
  Sex: Male
  Weight: 86.2 kg

DRUGS (4)
  1. BRILINTA [Suspect]
     Indication: CORONARY ARTERY STENOSIS
     Route: 048
     Dates: start: 20131008, end: 20131008
  2. BRILINTA [Suspect]
     Indication: CORONARY ARTERY STENOSIS
     Route: 048
     Dates: start: 20131008
  3. ASPIRIN [Suspect]
     Indication: CORONARY ARTERY STENOSIS
  4. ASPIRIN [Suspect]
     Indication: CORONARY ARTERY STENOSIS

REACTIONS (4)
  - Ventricular fibrillation [Recovered/Resolved]
  - Chest pain [Recovered/Resolved]
  - Electrocardiogram change [Recovered/Resolved]
  - Coronary artery thrombosis [Recovered/Resolved]
